FAERS Safety Report 18157130 (Version 1)
Quarter: 2020Q3

REPORT INFORMATION
  Report Type: Spontaneous
  Country: US (occurrence: US)
  Receive Date: 20200817
  Receipt Date: 20200817
  Transmission Date: 20201103
  Serious: Yes (Life-Threatening, Hospitalization, Disabling)
  Sender: FDA-Public Use
  Company Number: None

PATIENT
  Age: 70 Year
  Sex: Female
  Weight: 64.35 kg

DRUGS (5)
  1. LYNPARZA [Concomitant]
     Active Substance: OLAPARIB
  2. DEXCOM G6 [Concomitant]
  3. KEYTRUDA [Suspect]
     Active Substance: PEMBROLIZUMAB
     Indication: OVARIAN CANCER RECURRENT
     Route: 042
     Dates: start: 20190611, end: 20190812
  4. HUMALOG [Concomitant]
     Active Substance: INSULIN LISPRO
  5. TANDEM T:SLIM [Concomitant]

REACTIONS (4)
  - Type 1 diabetes mellitus [None]
  - Diabetic ketoacidosis [None]
  - Clinical trial participant [None]
  - Pancreatic failure [None]

NARRATIVE: CASE EVENT DATE: 20190817
